FAERS Safety Report 22041973 (Version 1)
Quarter: 2023Q1

REPORT INFORMATION
  Report Type: Other
  Country: None (occurrence: AU)
  Receive Date: 20230227
  Receipt Date: 20230227
  Transmission Date: 20230417
  Serious: Yes (Life-Threatening, Hospitalization)
  Sender: FDA-Public Use
  Company Number: AU-B.Braun Medical Inc.-2138498

PATIENT
  Age: 38 Year
  Sex: Female

DRUGS (2)
  1. MAGNESIUM SULFATE IN DEXTROSE [Suspect]
     Active Substance: MAGNESIUM SULFATE
     Indication: Ventricular extrasystoles
     Route: 042
  2. POTASSIUM [Suspect]
     Active Substance: POTASSIUM

REACTIONS (9)
  - Drug ineffective for unapproved indication [Unknown]
  - Off label use [Unknown]
  - Agitation [Unknown]
  - Abdominal pain [Unknown]
  - Diarrhoea [Unknown]
  - Muscular weakness [Unknown]
  - Acute kidney injury [Unknown]
  - Hyperkalaemia [Unknown]
  - Metabolic acidosis [Unknown]
